FAERS Safety Report 6383192-7 (Version None)
Quarter: 2009Q3

REPORT INFORMATION
  Report Type: 
  Country: None (occurrence: None)
  Receive Date: 20090929
  Receipt Date: 20090921
  Transmission Date: 20100115
  Serious: No
  Sender: FDA-Public Use
  Company Number: 20097444

PATIENT
  Age: 54 Year
  Sex: Female

DRUGS (1)
  1. LIORESAL [Suspect]
     Indication: MUSCLE SPASTICITY
     Dosage: UNK MCG, DILY, INTRATHECAL
     Route: 037

REACTIONS (10)
  - CONVULSION [None]
  - DEPRESSED LEVEL OF CONSCIOUSNESS [None]
  - GASTRIC DISORDER [None]
  - MENTAL STATUS CHANGES [None]
  - MUSCLE RIGIDITY [None]
  - NEEDLE ISSUE [None]
  - OEDEMA PERIPHERAL [None]
  - PYREXIA [None]
  - SWELLING [None]
  - UNDERDOSE [None]
